FAERS Safety Report 8602880-2 (Version None)
Quarter: 2012Q3

REPORT INFORMATION
  Report Type: 
  Country: None (occurrence: None)
  Receive Date: 20120817
  Receipt Date: 20120809
  Transmission Date: 20120928
  Serious: Yes (Hospitalization, Congenital Anomaly)
  Sender: FDA-Public Use
  Company Number: US-GLAXOSMITHKLINE-A0989891A

PATIENT
  Sex: Female

DRUGS (2)
  1. WELLBUTRIN SR [Concomitant]
     Dosage: 150MG TWICE PER DAY
     Route: 064
  2. PAXIL [Suspect]
     Route: 064

REACTIONS (2)
  - ATRIAL SEPTAL DEFECT [None]
  - FOETAL EXPOSURE DURING PREGNANCY [None]
